FAERS Safety Report 9445480 (Version 2)
Quarter: 2019Q3

REPORT INFORMATION
  Report Type: Spontaneous
  Country: US (occurrence: US)
  Receive Date: 20130807
  Receipt Date: 20190701
  Transmission Date: 20191005
  Serious: Yes (Other)
  Sender: FDA-Public Use
  Company Number: US-PFIZER INC-2013224956

PATIENT
  Age: 37 Year
  Sex: Female

DRUGS (3)
  1. METHIMAZOLE. [Suspect]
     Active Substance: METHIMAZOLE
     Indication: HYPERTHYROIDISM
     Dosage: 10 MG, 2X/DAY
  2. PROPYLTHIOURACIL. [Suspect]
     Active Substance: PROPYLTHIOURACIL
     Indication: HYPERTHYROIDISM
     Dosage: 50 MG, EVERY 8 HOURS
  3. ATENOLOL. [Concomitant]
     Active Substance: ATENOLOL
     Indication: HYPERTHYROIDISM
     Dosage: 10 MG, DAILY

REACTIONS (5)
  - Systemic inflammatory response syndrome [Unknown]
  - Ecthyma [Recovered/Resolved]
  - Pruritus generalised [Recovered/Resolved]
  - Maternal exposure during pregnancy [Unknown]
  - Agranulocytosis [Unknown]
